FAERS Safety Report 11536419 (Version 4)
Quarter: 2016Q1

REPORT INFORMATION
  Report Type: Spontaneous
  Country: US (occurrence: US)
  Receive Date: 20150922
  Receipt Date: 20160218
  Transmission Date: 20160525
  Serious: Yes (Other)
  Sender: FDA-Public Use
  Company Number: US-PFIZER INC-2015310093

PATIENT
  Age: 19 Year
  Sex: Female
  Weight: 64 kg

DRUGS (6)
  1. TIKOSYN [Suspect]
     Active Substance: DOFETILIDE
     Indication: BLOOD PRESSURE MEASUREMENT
     Dosage: 125 ?G, 2X/DAY
     Route: 048
     Dates: start: 20150914
  2. MICROGESTIN [Concomitant]
     Active Substance: ETHINYL ESTRADIOL\NORETHINDRONE ACETATE
     Indication: CONTRACEPTION
     Dosage: 1 DF, DAILY (MICROGESTIN 1.5/30)
     Route: 048
     Dates: start: 2014
  3. MIDODRINE [Concomitant]
     Active Substance: MIDODRINE
     Dosage: 10 MG, 2X/DAY
     Route: 048
     Dates: start: 2014
  4. TIKOSYN [Suspect]
     Active Substance: DOFETILIDE
     Indication: ATRIAL FIBRILLATION
     Dosage: 250 ?G, 2X/DAY
     Route: 048
     Dates: start: 201408
  5. TOPAMATE [Concomitant]
     Indication: MIGRAINE
     Dosage: 25 MG, 2X/DAY
     Dates: start: 2014
  6. TIKOSYN [Suspect]
     Active Substance: DOFETILIDE
     Dosage: 250 UG, 2X/DAY
     Dates: start: 201502

REACTIONS (11)
  - Asthenia [Recovered/Resolved with Sequelae]
  - Heart rate decreased [Recovered/Resolved]
  - Bradycardia [Recovered/Resolved]
  - Chest pain [Unknown]
  - Loss of consciousness [Recovered/Resolved]
  - Vomiting [Recovered/Resolved]
  - Hypotension [Not Recovered/Not Resolved]
  - Laryngitis [Unknown]
  - Blood pressure fluctuation [Not Recovered/Not Resolved]
  - Seizure [Recovered/Resolved]
  - Malaise [Recovered/Resolved with Sequelae]

NARRATIVE: CASE EVENT DATE: 20150909
